FAERS Safety Report 7681661-0 (Version None)
Quarter: 2011Q3

REPORT INFORMATION
  Report Type: 
  Country: None (occurrence: None)
  Receive Date: 20110812
  Receipt Date: 20110728
  Transmission Date: 20111222
  Serious: Yes (Hospitalization)
  Sender: FDA-Public Use
  Company Number: HU-ELI_LILLY_AND_COMPANY-HU201108000762

PATIENT
  Sex: Female

DRUGS (11)
  1. GEMCITABINE HYDROCHLORIDE [Suspect]
     Indication: NON-SMALL CELL LUNG CANCER
     Dosage: 2030 MG, UNK
     Route: 042
     Dates: start: 20091111
  2. ERYTHROPOETIN [Concomitant]
     Dosage: UNK
     Dates: start: 20091231
  3. BARIUM [Concomitant]
     Dosage: UNK
     Dates: start: 20100218
  4. GEMCITABINE HYDROCHLORIDE [Suspect]
     Dosage: 2088.9 MG, EVERY 3 WEEKS
     Route: 042
  5. BEVACIZUMAB [Suspect]
     Indication: NON-SMALL CELL LUNG CANCER
     Dosage: 435 MG, UNK
     Route: 042
     Dates: start: 20091111
  6. CARBOPLATIN [Suspect]
     Indication: NON-SMALL CELL LUNG CANCER
     Dosage: 613.5 MG, UNK
     Route: 042
     Dates: start: 20091111
  7. KALIUM [Concomitant]
     Dosage: UNK
     Dates: start: 20100212, end: 20100301
  8. BEVACIZUMAB [Suspect]
     Dosage: 465 MG, DAY 1 EVERY 21 DAYS
     Route: 042
  9. CARBOPLATIN [Suspect]
     Dosage: 712.44 MG, EVERY 3 WEEKS
     Route: 042
  10. ONDASETRON [Concomitant]
     Dosage: UNK
     Dates: start: 20091109
  11. EMEND [Concomitant]
     Dosage: UNK
     Dates: start: 20091130

REACTIONS (4)
  - GRANULOCYTOPENIA [None]
  - RECTAL HAEMORRHAGE [None]
  - EPISTAXIS [None]
  - THROMBOCYTOPENIA [None]
